FAERS Safety Report 4867197-0 (Version None)
Quarter: 2005Q4

REPORT INFORMATION
  Report Type: 
  Country: None (occurrence: None)
  Receive Date: 20051213
  Receipt Date: 20051128
  Transmission Date: 20060501
  Serious: Yes (Other)
  Sender: FDA-Public Use
  Company Number: US_0507120027

PATIENT
  Age: 56 Year
  Sex: Male
  Weight: 102.7 kg

DRUGS (8)
  1. ZYPREXA [Suspect]
     Indication: HUNTINGTON'S CHOREA
     Dosage: SEE IMAGE
     Route: 048
     Dates: start: 19980101, end: 20030101
  2. ZYPREXA [Suspect]
     Indication: HUNTINGTON'S CHOREA
     Dosage: SEE IMAGE
     Route: 048
     Dates: start: 20030101, end: 20040809
  3. ALENDRONATE SODIUM [Concomitant]
  4. FINASTERIDE [Concomitant]
  5. FUROSEMIDE [Concomitant]
  6. LOSARTAN POTASSIUM [Concomitant]
  7. MECLIZINE HYDROCHLORIDE (MECLOZINE HYDROCHLORIDE) [Concomitant]
  8. SERTRALINE HCL [Concomitant]

REACTIONS (4)
  - DEEP VEIN THROMBOSIS [None]
  - DIABETES MELLITUS NON-INSULIN-DEPENDENT [None]
  - HEPATIC STEATOSIS [None]
  - WEIGHT INCREASED [None]
